FAERS Safety Report 9248218 (Version 1)
Quarter: 2013Q1

REPORT INFORMATION
  Report Type: Spontaneous
  Country: US (occurrence: None)
  Receive Date: 20130305
  Receipt Date: 20130305
  Transmission Date: 20140127
  Serious: Yes (Other)
  Sender: FDA-Public Use
  Company Number: 163-21880-12060672

PATIENT
  Sex: Female
  Weight: 65.77 kg

DRUGS (1)
  1. REVLIMID [Suspect]
     Indication: PLASMA CELL MYELOMA
     Dosage: 5 MG, QD X 21 DAYS, PO
     Dates: start: 2007

REACTIONS (2)
  - Rash generalised [None]
  - Vulvovaginal mycotic infection [None]
